FAERS Safety Report 7138188-4 (Version None)
Quarter: 2010Q4

REPORT INFORMATION
  Report Type: 
  Country: None (occurrence: None)
  Receive Date: 20101206
  Receipt Date: 20100630
  Transmission Date: 20110411
  Serious: No
  Sender: FDA-Public Use
  Company Number: US-ABBOTT-10P-163-0654585-00

PATIENT
  Age: 51 Year
  Sex: Female

DRUGS (4)
  1. CEFDINIR [Suspect]
     Indication: UPPER RESPIRATORY TRACT INFECTION
  2. THYROID TAB [Suspect]
     Indication: HYPOTHYROIDISM
     Route: 048
     Dates: start: 20100407
  3. DARVOCET [Suspect]
     Indication: PAIN IN EXTREMITY
  4. REPRAXAIN(HYDROCODONE + IBUPROFEN) [Suspect]
     Indication: PAIN IN EXTREMITY
     Dosage: 10/200MG

REACTIONS (2)
  - PRURITUS [None]
  - RASH [None]
